FAERS Safety Report 11302937 (Version 1)
Quarter: 2015Q3

REPORT INFORMATION
  Report Type: Spontaneous
  Country: US (occurrence: None)
  Receive Date: 20150723
  Receipt Date: 20150723
  Transmission Date: 20151125
  Serious: Yes (Death, Life-Threatening, Hospitalization)
  Sender: FDA-Public Use
  Company Number: None

PATIENT
  Age: 71 Year
  Sex: Female
  Weight: 136 kg

DRUGS (28)
  1. ALEVE [Concomitant]
     Active Substance: NAPROXEN SODIUM
  2. NORCO [Concomitant]
     Active Substance: ACETAMINOPHEN\HYDROCODONE BITARTRATE
  3. PIPERACILLIN/TAZOBACTAM [Suspect]
     Active Substance: PIPERACILLIN SODIUM\TAZOBACTAM SODIUM
     Indication: INFECTION
     Dosage: UNKNOWN DOSE 1 DOSE INTRAVENOUS
     Route: 042
     Dates: start: 20150709, end: 20150709
  4. POTASSIUM CHLORIDE ER [Concomitant]
     Active Substance: POTASSIUM CHLORIDE
  5. ZOFRAN [Concomitant]
     Active Substance: ONDANSETRON HYDROCHLORIDE
  6. ACETAMINOPHEN. [Concomitant]
     Active Substance: ACETAMINOPHEN
  7. FUROSEMIDE. [Concomitant]
     Active Substance: FUROSEMIDE
  8. DOCUSATE SODIUM. [Concomitant]
     Active Substance: DOCUSATE SODIUM
  9. HUMULIN R [Concomitant]
     Active Substance: INSULIN HUMAN
  10. MULTIVITAMIN WITH MINERALS [Concomitant]
     Active Substance: MINERALS\VITAMINS
  11. OMEPRAZOLE. [Concomitant]
     Active Substance: OMEPRAZOLE
  12. CLINDAMYCIN [Concomitant]
     Active Substance: CLINDAMYCIN\CLINDAMYCIN PHOSPHATE
  13. HYDROXYZINE [Concomitant]
     Active Substance: HYDROXYZINE\HYDROXYZINE HYDROCHLORIDE
  14. ZADITOR [Concomitant]
     Active Substance: KETOTIFEN FUMARATE
  15. TUMS [Concomitant]
     Active Substance: CALCIUM CARBONATE
  16. LOSARTAN. [Concomitant]
     Active Substance: LOSARTAN
  17. FENTANYL. [Concomitant]
     Active Substance: FENTANYL
  18. JANUMET--SITAGLIPTIN/METFORMIN [Concomitant]
  19. RESINOL [Concomitant]
     Active Substance: PETROLATUM\RESORCINOL
  20. NYSTATIN. [Concomitant]
     Active Substance: NYSTATIN
  21. NEURONTIN [Concomitant]
     Active Substance: GABAPENTIN
  22. ATROVENT [Concomitant]
     Active Substance: IPRATROPIUM BROMIDE
  23. HYDROCORTISONE. [Concomitant]
     Active Substance: HYDROCORTISONE
  24. AZELASTINE [Concomitant]
     Active Substance: AZELASTINE
  25. MILK OF MAGNESIA [Concomitant]
     Active Substance: MAGNESIUM HYDROXIDE
  26. POLYSPORIN [Concomitant]
     Active Substance: BACITRACIN ZINC\POLYMYXIN B SULFATE
  27. SALINE [Concomitant]
     Active Substance: SODIUM CHLORIDE
  28. LANTUS [Concomitant]
     Active Substance: INSULIN GLARGINE

REACTIONS (10)
  - Cardio-respiratory arrest [None]
  - Acute kidney injury [None]
  - Nosocomial infection [None]
  - Endotracheal intubation complication [None]
  - Anaphylactic shock [None]
  - Pneumonia [None]
  - Acute respiratory failure [None]
  - Escherichia test positive [None]
  - Metabolic acidosis [None]
  - Subcutaneous emphysema [None]

NARRATIVE: CASE EVENT DATE: 20150709
